FAERS Safety Report 8766641 (Version 1)
Quarter: 2012Q4

REPORT INFORMATION
  Report Type: 
  Country: US (occurrence: US)
  Receive Date: 20120904
  Receipt Date: 20120904
  Transmission Date: 20130627
  Serious: Yes (Other)
  Sender: FDA-Public Use
  Company Number: US-PFIZER INC-2012213251

PATIENT
  Age: 29 Year
  Sex: Female
  Weight: 65.8 kg

DRUGS (4)
  1. MEDROXYPROGESTERONE ACETATE [Suspect]
     Indication: ENDOMETRIOSIS
     Dosage: UNK, every 3 months (every 12 weeks)
     Dates: start: 201003
  2. DOXYCYCLINE [Suspect]
     Indication: TOOTH INFECTION
     Dosage: UNK
     Dates: start: 20120715, end: 201207
  3. CIPROFLOXACIN [Suspect]
     Indication: TOOTH INFECTION
     Dosage: UNK
     Dates: start: 20120711, end: 201207
  4. PRILOSEC [Concomitant]
     Indication: GASTROOESOPHAGEAL REFLUX DISEASE
     Dosage: 40 mg, 2x/day

REACTIONS (8)
  - Anaphylactic reaction [Unknown]
  - Hypersensitivity [Recovered/Resolved]
  - Pharyngeal oedema [Unknown]
  - Urticaria [Unknown]
  - Pruritus [Unknown]
  - Vision blurred [Unknown]
  - Dizziness [Recovered/Resolved]
  - Drug administration error [Unknown]
